FAERS Safety Report 7351479-7 (Version None)
Quarter: 2011Q1

REPORT INFORMATION
  Report Type: 
  Country: None (occurrence: None)
  Receive Date: 20110314
  Receipt Date: 20110228
  Transmission Date: 20110831
  Serious: Yes (Death)
  Sender: FDA-Public Use
  Company Number: GB-GENENTECH-313745

PATIENT
  Sex: Male

DRUGS (1)
  1. LUCENTIS [Suspect]
     Indication: MACULAR DEGENERATION
     Dosage: UNK
     Route: 031
     Dates: start: 20090701, end: 20100715

REACTIONS (4)
  - SEPSIS [None]
  - ISCHAEMIA [None]
  - AORTIC VALVE DISEASE [None]
  - MULTI-ORGAN FAILURE [None]
